FAERS Safety Report 20568247 (Version 1)
Quarter: 2022Q1

REPORT INFORMATION
  Report Type: Spontaneous
  Country: FR (occurrence: FR)
  Receive Date: 20220308
  Receipt Date: 20220308
  Transmission Date: 20220423
  Serious: Yes (Hospitalization, Congenital Anomaly, Other)
  Sender: FDA-Public Use
  Company Number: FR-ABBVIE-22K-056-4305617-00

PATIENT
  Sex: Male
  Weight: 4.19 kg

DRUGS (1)
  1. VALPROATE SODIUM [Suspect]
     Active Substance: VALPROATE SODIUM
     Indication: Maternal exposure timing unspecified
     Route: 062

REACTIONS (41)
  - Tracheitis [Unknown]
  - Limb asymmetry [Unknown]
  - Hypertonic bladder [Unknown]
  - Nasopharyngitis [Unknown]
  - Tracheobronchitis [Unknown]
  - Lung disorder [Unknown]
  - Chordee [Unknown]
  - Cryptorchism [Unknown]
  - Crying [Unknown]
  - Myopia [Unknown]
  - Affect lability [Unknown]
  - Congenital scoliosis [Unknown]
  - Dysmorphism [Unknown]
  - Back disorder [Unknown]
  - Behaviour disorder [Unknown]
  - Autism spectrum disorder [Unknown]
  - Memory impairment [Unknown]
  - Micturition urgency [Unknown]
  - Bronchopulmonary disease [Unknown]
  - Appendicitis [Unknown]
  - Social problem [Unknown]
  - Lymphoid tissue hyperplasia [Unknown]
  - Impulsive behaviour [Unknown]
  - Congenital inguinal hernia [Unknown]
  - Dysgraphia [Unknown]
  - Deformity thorax [Unknown]
  - Hypertonic bladder [Unknown]
  - Language disorder [Unknown]
  - Educational problem [Unknown]
  - Mental disorder [Unknown]
  - Astigmatism [Unknown]
  - Arthralgia [Unknown]
  - Back pain [Unknown]
  - Anxiety [Unknown]
  - Disturbance in attention [Unknown]
  - Rhinitis [Unknown]
  - Cough [Unknown]
  - Ear infection [Unknown]
  - Bronchitis [Unknown]
  - Disturbance in attention [Unknown]
  - Foetal exposure during pregnancy [Unknown]
